FAERS Safety Report 18594916 (Version 1)
Quarter: 2020Q4

REPORT INFORMATION
  Report Type: Spontaneous
  Country: US (occurrence: US)
  Receive Date: 20201209
  Receipt Date: 20201209
  Transmission Date: 20210114
  Serious: Yes (Hospitalization, Other)
  Sender: FDA-Public Use
  Company Number: US-LUPIN PHARMACEUTICALS INC.-2020-10060

PATIENT
  Age: 74 Year
  Sex: Female

DRUGS (6)
  1. AZATHIOPRINE. [Suspect]
     Active Substance: AZATHIOPRINE
     Indication: DERMATOMYOSITIS
     Dosage: UNK
     Route: 065
  2. IMMUNOGLOBULINS NOS [Suspect]
     Active Substance: IMMUNE GLOBULIN NOS
     Indication: DERMATOMYOSITIS
     Dosage: UNK
     Route: 042
  3. VALACYCLOVIR [Concomitant]
     Active Substance: VALACYCLOVIR HYDROCHLORIDE
     Indication: RETINITIS VIRAL
     Dosage: 1 GRAM, TID
     Route: 065
  4. TRIAMCINOLONE ACETONIDE. [Suspect]
     Active Substance: TRIAMCINOLONE ACETONIDE
     Indication: RETINITIS VIRAL
     Dosage: 40MG/1CC (ROUTE: SUBTENONS)
     Route: 047
  5. PREDNISONE. [Suspect]
     Active Substance: PREDNISONE
     Indication: RETINITIS VIRAL
     Dosage: 60 MILLIGRAM, UNK
     Route: 048
  6. PREDNISONE. [Suspect]
     Active Substance: PREDNISONE
     Indication: IRITIS
     Dosage: UNK (1%)
     Route: 061

REACTIONS (4)
  - Eye infection toxoplasmal [Recovering/Resolving]
  - Rhegmatogenous retinal detachment [Recovering/Resolving]
  - Tractional retinal detachment [Recovering/Resolving]
  - Toxoplasmosis [Recovering/Resolving]
